FAERS Safety Report 4897656-6 (Version None)
Quarter: 2006Q1

REPORT INFORMATION
  Report Type: 
  Country: None (occurrence: None)
  Receive Date: 20060201
  Receipt Date: 20051129
  Transmission Date: 20060701
  Serious: Yes (Disabling, Other)
  Sender: FDA-Public Use
  Company Number: PHNU2005DE03928

PATIENT
  Age: 57 Year
  Sex: Female
  Weight: 58 kg

DRUGS (3)
  1. FEMARA [Suspect]
     Indication: BREAST CANCER FEMALE
     Dosage: 2.5 MG, QD
     Route: 048
     Dates: start: 20051125
  2. ARIMIDEX [Suspect]
     Indication: BREAST CANCER FEMALE
     Dosage: 1 DF, QD
     Route: 048
     Dates: start: 20040504, end: 20050401
  3. AROMASIN [Suspect]
     Indication: BREAST CANCER FEMALE
     Dosage: 1 DF, QD
     Route: 048
     Dates: start: 20050401, end: 20051001

REACTIONS (8)
  - ARTHRALGIA [None]
  - AUTOANTIBODY POSITIVE [None]
  - AUTOIMMUNE DISORDER [None]
  - BLOOD CREATINE PHOSPHOKINASE INCREASED [None]
  - BLOOD CREATINE PHOSPHOKINASE MB [None]
  - BLOOD PROLACTIN INCREASED [None]
  - CREST SYNDROME [None]
  - MYALGIA [None]
